FAERS Safety Report 8386687-X (Version None)
Quarter: 2012Q2

REPORT INFORMATION
  Report Type: 
  Country: None (occurrence: None)
  Receive Date: 20120525
  Receipt Date: 20120511
  Transmission Date: 20120825
  Serious: Yes (Hospitalization)
  Sender: FDA-Public Use
  Company Number: CA-SANOFI-AVENTIS-2011SA061131

PATIENT
  Age: 59 Year
  Sex: Female

DRUGS (11)
  1. SINGULAIR [Concomitant]
  2. ORENCIA [Suspect]
     Indication: RHEUMATOID ARTHRITIS
     Dosage: 39 INFUSIONS
     Route: 042
     Dates: start: 20080904, end: 20120220
  3. LANTUS [Concomitant]
  4. SYNTHROID [Concomitant]
  5. RAMIPRIL [Concomitant]
  6. CICLESONIDE [Concomitant]
  7. CLONAZEPAM [Concomitant]
  8. PLAVIX [Suspect]
     Route: 042
  9. ADALAT [Concomitant]
  10. ALBUTEROL [Concomitant]
  11. NOVORAPID [Concomitant]

REACTIONS (4)
  - METABOLIC ENCEPHALOPATHY [None]
  - BLOOD PRESSURE INCREASED [None]
  - EPISTAXIS [None]
  - FATIGUE [None]
